FAERS Safety Report 9580245 (Version 1)
Quarter: 2013Q3

REPORT INFORMATION
  Report Type: Spontaneous
  Country: TR (occurrence: None)
  Receive Date: 20130930
  Receipt Date: 20130930
  Transmission Date: 20140515
  Serious: Yes (Hospitalization)
  Sender: FDA-Public Use
  Company Number: 2013P1019508

PATIENT
  Age: 57 Year
  Sex: Female

DRUGS (7)
  1. ZOLEDRONIC ACID [Suspect]
     Indication: OSTEOPENIA
     Route: 042
  2. FUROSEMIDE [Suspect]
  3. PREDNISOLONE [Concomitant]
  4. HYDROXYCHLOROQUINE [Concomitant]
  5. LANSOPRAZOLE [Concomitant]
  6. CALCIUM [Concomitant]
  7. VITAMIN D3 [Suspect]

REACTIONS (6)
  - Hypocalcaemia [None]
  - Dyspnoea [None]
  - Joint contracture [None]
  - Epigastric discomfort [None]
  - Hyponatraemia [None]
  - Hypokalaemia [None]
